FAERS Safety Report 4933046-5 (Version None)
Quarter: 2006Q1

REPORT INFORMATION
  Report Type: 
  Country: None (occurrence: None)
  Receive Date: 20060301
  Receipt Date: 20060217
  Transmission Date: 20060701
  Serious: Yes (Hospitalization)
  Sender: FDA-Public Use
  Company Number: 2006S1001506

PATIENT
  Age: 48 Year
  Sex: Female
  Weight: 47.6277 kg

DRUGS (4)
  1. MORPHINE [Suspect]
     Indication: LUNG NEOPLASM MALIGNANT
     Dosage: IV
     Route: 042
  2. FENTANYL TRANSDERMAL SYSTEM [Suspect]
     Indication: LUNG NEOPLASM MALIGNANT
     Dosage: SEE IMAGE
     Dates: start: 20060211, end: 20060201
  3. FENTANYL TRANSDERMAL SYSTEM [Suspect]
     Indication: LUNG NEOPLASM MALIGNANT
     Dosage: SEE IMAGE
     Dates: start: 20051101, end: 20060211
  4. FENTANYL TRANSDERMAL SYSTEM [Suspect]
     Indication: LUNG NEOPLASM MALIGNANT
     Dosage: SEE IMAGE
     Dates: start: 20060201

REACTIONS (4)
  - CONDITION AGGRAVATED [None]
  - DEPRESSED LEVEL OF CONSCIOUSNESS [None]
  - PAIN [None]
  - SEDATION [None]
